FAERS Safety Report 19574199 (Version 1)
Quarter: 2021Q3

REPORT INFORMATION
  Report Type: Spontaneous
  Country: FR (occurrence: FR)
  Receive Date: 20210719
  Receipt Date: 20210719
  Transmission Date: 20211014
  Serious: Yes (Death, Hospitalization, Other)
  Sender: FDA-Public Use
  Company Number: FR-AMGEN-FRASP2021108929

PATIENT

DRUGS (9)
  1. NABUMETONE. [Concomitant]
     Active Substance: NABUMETONE
     Dosage: UNK
  2. ETANERCEPT [Concomitant]
     Active Substance: ETANERCEPT
     Indication: PSORIATIC ARTHROPATHY
     Dosage: UNK
     Route: 065
  3. ADALIMUMAB [Suspect]
     Active Substance: ADALIMUMAB
     Indication: PSORIATIC ARTHROPATHY
     Dosage: UNK
     Route: 065
  4. INFLIXIMAB [Concomitant]
     Active Substance: INFLIXIMAB
     Dosage: UNK
  5. PREDNISONE. [Concomitant]
     Active Substance: PREDNISONE
     Dosage: UNK
  6. CERTOLIZUMAB [Concomitant]
     Active Substance: CERTOLIZUMAB
     Dosage: UNK
  7. GOLIMUMAB [Concomitant]
     Active Substance: GOLIMUMAB
     Dosage: UNK
  8. COXIB [CELECOXIB] [Concomitant]
     Dosage: UNK
  9. OXICAM [Concomitant]
     Active Substance: PIROXICAM
     Dosage: UNK

REACTIONS (3)
  - Acute myocardial infarction [Unknown]
  - Cerebral infarction [Unknown]
  - Death [Fatal]
